FAERS Safety Report 4874771-4 (Version None)
Quarter: 2006Q1

REPORT INFORMATION
  Report Type: 
  Country: None (occurrence: None)
  Receive Date: 20060104
  Receipt Date: 20060104
  Transmission Date: 20060701
  Serious: Yes (Life-Threatening, Hospitalization, Disabling, Congenital Anomaly, Other)
  Sender: FDA-Public Use
  Company Number: None

PATIENT
  Sex: Female

DRUGS (1)
  1. PAXIL [Suspect]
     Indication: DEPRESSION
     Dosage: 30 MG ONCE DAILY PO
     Route: 048
     Dates: start: 19960101, end: 20050101

REACTIONS (14)
  - ABDOMINAL DISTENSION [None]
  - APGAR SCORE LOW [None]
  - CARDIOVASCULAR DISORDER [None]
  - DOUBLE OUTLET RIGHT VENTRICLE [None]
  - DRUG EXPOSURE DURING PREGNANCY [None]
  - HYPERTENSION [None]
  - INDUCED LABOUR [None]
  - INFLUENZA LIKE ILLNESS [None]
  - IRRITABILITY [None]
  - PULMONARY VALVE STENOSIS [None]
  - SUICIDAL IDEATION [None]
  - TRANSPOSITION OF THE GREAT VESSELS [None]
  - TRICUSPID VALVE INCOMPETENCE [None]
  - VENTRICULAR SEPTAL DEFECT [None]
